FAERS Safety Report 9360994 (Version 1)
Quarter: 2013Q2

REPORT INFORMATION
  Report Type: Spontaneous
  Country: FR (occurrence: FR)
  Receive Date: 20130621
  Receipt Date: 20130621
  Transmission Date: 20140414
  Serious: Yes (Other)
  Sender: FDA-Public Use
  Company Number: FR-PFIZER INC-2013180626

PATIENT
  Age: 41 Year
  Sex: Female

DRUGS (3)
  1. EFFEXOR LP [Suspect]
     Dosage: 150 MG, 1X/DAY
     Route: 048
     Dates: start: 2007
  2. XANAX [Suspect]
     Dosage: 0.5 MG, DAILY
     Route: 048
     Dates: start: 2007
  3. LEVOTHYROX [Suspect]
     Dosage: 25 UG, DAILY
     Route: 048
     Dates: start: 2007

REACTIONS (1)
  - Abortion spontaneous [Recovered/Resolved]
